FAERS Safety Report 20344768 (Version 1)
Quarter: 2022Q1

REPORT INFORMATION
  Report Type: Spontaneous
  Country: CH (occurrence: CH)
  Receive Date: 20220118
  Receipt Date: 20220118
  Transmission Date: 20220423
  Serious: Yes (Hospitalization, Other)
  Sender: FDA-Public Use
  Company Number: None

PATIENT
  Age: 67 Year
  Sex: Female

DRUGS (15)
  1. ZOLPIDEM TARTRATE [Suspect]
     Active Substance: ZOLPIDEM TARTRATE
     Dosage: 10MG, QD
     Route: 048
     Dates: end: 20211204
  2. IMOVANE [Suspect]
     Active Substance: ZOPICLONE
     Dosage: 7.5MG, QD
     Dates: end: 202112
  3. PREGABALIN [Suspect]
     Active Substance: PREGABALIN
     Dosage: 100 MG, BID
     Route: 048
  4. REMERON [Suspect]
     Active Substance: MIRTAZAPINE
     Dosage: 30 MG, QD
  5. TRAZODONE HYDROCHLORIDE [Suspect]
     Active Substance: TRAZODONE HYDROCHLORIDE
     Dosage: 100MG, QD
     Route: 048
  6. OXAZEPAM [Suspect]
     Active Substance: OXAZEPAM
     Dosage: UNK, PRN
     Route: 048
     Dates: end: 202112
  7. MELATONIN [Suspect]
     Active Substance: MELATONIN
     Dosage: 2MG QD
     Route: 048
  8. DOXYLAMINE [Suspect]
     Active Substance: DOXYLAMINE
     Dosage: 1 GTT DROPS, QD
     Dates: end: 202112
  9. MORPHINE [Suspect]
     Active Substance: MORPHINE
     Dosage: 5 MG, QID
     Dates: end: 202112
  10. CANNABIDIOL [Suspect]
     Active Substance: CANNABIDIOL
     Dosage: 1DF, QD
     Route: 048
  11. NEXIUM [Concomitant]
     Active Substance: ESOMEPRAZOLE MAGNESIUM
     Route: 048
  12. BETAHISTINE HYDROCHLORIDE [Concomitant]
     Active Substance: BETAHISTINE HYDROCHLORIDE
     Route: 048
  13. SODIUM PICOSULFATE [Concomitant]
     Active Substance: SODIUM PICOSULFATE
     Dosage: UNK, PRN
     Route: 048
  14. MAGALDRATE [Concomitant]
     Active Substance: MAGALDRATE
     Dosage: UNK, PRN
     Route: 048
  15. SYMFONA [GINKGO BILOBA ACETONE EXTRACT] [Concomitant]
     Route: 048

REACTIONS (2)
  - Fall [Not Recovered/Not Resolved]
  - Confusional state [Recovering/Resolving]

NARRATIVE: CASE EVENT DATE: 20211206
